FAERS Safety Report 17522807 (Version 1)
Quarter: 2020Q1

REPORT INFORMATION
  Report Type: Spontaneous
  Country: CN (occurrence: CN)
  Receive Date: 20200311
  Receipt Date: 20200311
  Transmission Date: 20200409
  Serious: Yes (Other)
  Sender: FDA-Public Use
  Company Number: CN-BAXTER-2020BAX004966

PATIENT
  Age: 76 Year
  Sex: Female
  Weight: 55 kg

DRUGS (2)
  1. 20% MANNITOL INJECTION [Suspect]
     Active Substance: MANNITOL
     Indication: CEREBRAL INFARCTION
     Route: 041
     Dates: start: 20200205, end: 20200208
  2. 20% MANNITOL INJECTION [Suspect]
     Active Substance: MANNITOL
     Indication: BRAIN OEDEMA

REACTIONS (5)
  - Cerebral infarction [Unknown]
  - Pneumonitis [Unknown]
  - Condition aggravated [Unknown]
  - Renal impairment [Recovering/Resolving]
  - Renal failure [Unknown]

NARRATIVE: CASE EVENT DATE: 20200208
